FAERS Safety Report 4741706-4 (Version None)
Quarter: 2005Q3

REPORT INFORMATION
  Report Type: 
  Country: None (occurrence: None)
  Receive Date: 20050810
  Receipt Date: 20050808
  Transmission Date: 20060218
  Serious: Yes (Other)
  Sender: FDA-Public Use
  Company Number: US-MERCK-0508USA01618

PATIENT
  Age: 51 Year
  Sex: Male

DRUGS (6)
  1. PROPECIA [Suspect]
     Indication: ALOPECIA
     Route: 048
     Dates: start: 19970101
  2. PLAVIX [Concomitant]
     Route: 065
  3. ALTACE [Concomitant]
     Route: 065
  4. TRAZODONE HYDROCHLORIDE [Concomitant]
     Route: 065
  5. LIPITOR [Concomitant]
     Route: 065
  6. LANSOPRAZOLE [Concomitant]
     Route: 065

REACTIONS (2)
  - EJACULATION DISORDER [None]
  - MYOCARDIAL INFARCTION [None]
